FAERS Safety Report 13158986 (Version 2)
Quarter: 2017Q1

REPORT INFORMATION
  Report Type: Spontaneous
  Country: JP (occurrence: JP)
  Receive Date: 20170127
  Receipt Date: 20170210
  Transmission Date: 20170428
  Serious: Yes (Hospitalization, Other)
  Sender: FDA-Public Use
  Company Number: JP-GLAXOSMITHKLINE-JP2017JPN003126

PATIENT
  Age: 47 Year
  Sex: Male
  Weight: 65 kg

DRUGS (6)
  1. HUSCODE [Concomitant]
     Active Substance: CHLORPHENIRAMINE MALEAT\DIHYDROCODEINE PHOSPHATE\METHYLEPHEDRINE HYDROCHLORIDE, DL-
     Dosage: UNK
  2. RELENZA [Suspect]
     Active Substance: ZANAMIVIR
     Indication: ANTIVIRAL PROPHYLAXIS
     Dosage: 10 MG, QD
     Route: 055
     Dates: start: 20141225, end: 20141227
  3. LOXONIN [Concomitant]
     Active Substance: LOXOPROFEN SODIUM
     Dosage: UNK
  4. GENINAX [Suspect]
     Active Substance: GARENOXACIN MESYLATE
     Dosage: UNK
     Dates: start: 20141228
  5. INAVIR (JAPAN) [Concomitant]
     Dosage: UNK
     Dates: start: 20141228
  6. MUCODYNE [Concomitant]
     Active Substance: CARBOCYSTEINE
     Dosage: UNK

REACTIONS (8)
  - Generalised erythema [Recovering/Resolving]
  - Oedema mucosal [Recovered/Resolved]
  - Drug eruption [Recovered/Resolved]
  - Oral mucosa erosion [Recovering/Resolving]
  - Hyperthermia [Recovering/Resolving]
  - Drug reaction with eosinophilia and systemic symptoms [Recovering/Resolving]
  - Oedema mouth [Recovering/Resolving]
  - Hepatic function abnormal [Recovering/Resolving]

NARRATIVE: CASE EVENT DATE: 20141228
